FAERS Safety Report 17843805 (Version 2)
Quarter: 2021Q2

REPORT INFORMATION
  Report Type: Spontaneous
  Country: CA (occurrence: CA)
  Receive Date: 20200531
  Receipt Date: 20210420
  Transmission Date: 20210717
  Serious: Yes (Hospitalization, Other)
  Sender: FDA-Public Use
  Company Number: CA-B.I. PHARMACEUTICALS,INC./RIDGEFIELD-2020-BI-026459

PATIENT
  Age: 58 Year
  Sex: Male

DRUGS (15)
  1. FLOVENT [Suspect]
     Active Substance: FLUTICASONE PROPIONATE
     Indication: ASTHMA
     Dosage: DOSAGE FORM: POWDER
     Route: 065
  2. BUDESONIDE;FORMOTEROL FUMARATE [Suspect]
     Active Substance: BUDESONIDE\FORMOTEROL FUMARATE
     Indication: ASTHMA
     Dosage: DOSAGE FORM: INHALATION
     Route: 055
  3. NUCALA [Suspect]
     Active Substance: MEPOLIZUMAB
     Route: 042
  4. SINGULAIR [Suspect]
     Active Substance: MONTELUKAST SODIUM
     Indication: ASTHMA
     Route: 065
  5. SINGULAIR [Suspect]
     Active Substance: MONTELUKAST SODIUM
     Indication: PRODUCT USED FOR UNKNOWN INDICATION
     Dosage: 1 DF 1 EVERY 1 DAY
     Route: 065
  6. SINGULAIR [Suspect]
     Active Substance: MONTELUKAST SODIUM
     Route: 065
  7. BREO ELLIPTA [Suspect]
     Active Substance: FLUTICASONE FUROATE\VILANTEROL TRIFENATATE
     Indication: PRODUCT USED FOR UNKNOWN INDICATION
     Dosage: DOSAGE FORM: INHALATION 2 DF 1 EVERY 1 DAY
     Route: 055
  8. SPIRIVA [Suspect]
     Active Substance: TIOTROPIUM BROMIDE MONOHYDRATE
     Indication: ASTHMA
     Dosage: ORAL INHALATION WITH RESPIMAT INHALER ONLY. 5G/DOSE?2 DF 1 EVERY 1 DAY
     Route: 055
  9. SINGULAIR [Suspect]
     Active Substance: MONTELUKAST SODIUM
     Dosage: 1 DF 1 EVERY 1 DAY
     Route: 065
  10. NUCALA [Suspect]
     Active Substance: MEPOLIZUMAB
     Indication: ASTHMA
     Route: 042
  11. SPIRIVA [Suspect]
     Active Substance: TIOTROPIUM BROMIDE MONOHYDRATE
     Indication: PRODUCT USED FOR UNKNOWN INDICATION
     Route: 065
  12. SALBUTAMOL SULFATE [Suspect]
     Active Substance: ALBUTEROL SULFATE
     Indication: ASTHMA
     Dosage: 2 DF 1 EVERY 1 DAY
     Route: 065
  13. NUCALA [Suspect]
     Active Substance: MEPOLIZUMAB
     Indication: PRODUCT USED FOR UNKNOWN INDICATION
     Route: 042
  14. SYMBICORT [Suspect]
     Active Substance: BUDESONIDE\FORMOTEROL FUMARATE DIHYDRATE
     Indication: ASTHMA
     Dosage: DOSAGE FORM: POWDER
     Route: 065
  15. NUCALA [Suspect]
     Active Substance: MEPOLIZUMAB
     Route: 042

REACTIONS (15)
  - Bronchiectasis [Unknown]
  - Asthma [Unknown]
  - Loss of personal independence in daily activities [Unknown]
  - Diabetes mellitus [Unknown]
  - Pneumonia [Unknown]
  - Therapeutic product effect incomplete [Unknown]
  - Hypertension [Unknown]
  - Influenza [Unknown]
  - Wheezing [Unknown]
  - Atelectasis [Unknown]
  - Eosinophilia [Unknown]
  - Dysphonia [Unknown]
  - Blood count abnormal [Unknown]
  - Dyspnoea [Unknown]
  - Sleep disorder due to a general medical condition [Unknown]
